FAERS Safety Report 26005036 (Version 2)
Quarter: 2025Q4

REPORT INFORMATION
  Report Type: Report from Study
  Country: US (occurrence: US)
  Receive Date: 20251106
  Receipt Date: 20251111
  Transmission Date: 20260117
  Serious: Yes (Other)
  Sender: ABBVIE
  Company Number: US-ABBVIE-5584361

PATIENT
  Age: 49 Year
  Sex: Male
  Weight: 97.975 kg

DRUGS (8)
  1. VENCLEXTA [Suspect]
     Active Substance: VENETOCLAX
     Indication: Plasma cell myeloma
     Dosage: FORM STRENGTH: 100MG
     Route: 048
     Dates: start: 202106
  2. VENCLEXTA [Suspect]
     Active Substance: VENETOCLAX
     Indication: Plasma cell myeloma
     Dosage: TAKE 8 TABLET(S) INACTIVE
     Route: 048
  3. DEXAMETHASONE [Concomitant]
     Active Substance: DEXAMETHASONE
     Indication: Product used for unknown indication
  4. ACYCLOVIR [Concomitant]
     Active Substance: ACYCLOVIR
     Indication: Product used for unknown indication
  5. ALLOPURINOL [Concomitant]
     Active Substance: ALLOPURINOL
     Indication: Product used for unknown indication
  6. ONDANSETRON [Concomitant]
     Active Substance: ONDANSETRON
     Indication: Product used for unknown indication
  7. ZOLPIDEM [Concomitant]
     Active Substance: ZOLPIDEM TARTRATE
     Indication: Product used for unknown indication
  8. BENAZEPRIL AND HYDROCHLOROTHIAZIDE [Concomitant]
     Active Substance: BENAZEPRIL HYDROCHLORIDE\HYDROCHLOROTHIAZIDE
     Indication: Product used for unknown indication

REACTIONS (15)
  - Disease progression [Unknown]
  - Off label use [Unknown]
  - Nausea [Unknown]
  - Decreased appetite [Unknown]
  - Back pain [Unknown]
  - Plasma cell myeloma [Unknown]
  - White blood cell count decreased [Unknown]
  - Haemoglobin decreased [Unknown]
  - Haematocrit decreased [Unknown]
  - Carbon dioxide increased [Unknown]
  - Blood magnesium decreased [Unknown]
  - Light chain analysis decreased [Unknown]
  - Protein total decreased [Unknown]
  - Blood immunoglobulin M decreased [Unknown]
  - Gamma-glutamyltransferase decreased [Unknown]

NARRATIVE: CASE EVENT DATE: 20170301
